FAERS Safety Report 6257135-0 (Version None)
Quarter: 2009Q3

REPORT INFORMATION
  Report Type: 
  Country: None (occurrence: None)
  Receive Date: 20090706
  Receipt Date: 20090627
  Transmission Date: 20100115
  Serious: Yes (Other)
  Sender: FDA-Public Use
  Company Number: D0062128A

PATIENT
  Sex: Female

DRUGS (1)
  1. CEFUROXIME [Suspect]
     Dosage: 500MG UNKNOWN
     Route: 048

REACTIONS (4)
  - DIARRHOEA [None]
  - FAECES DISCOLOURED [None]
  - OROPHARYNGITIS FUNGAL [None]
  - PRURITUS GENITAL [None]
